FAERS Safety Report 4813604-9 (Version None)
Quarter: 2005Q4

REPORT INFORMATION
  Report Type: 
  Country: None (occurrence: None)
  Receive Date: 20051028
  Receipt Date: 20050302
  Transmission Date: 20060501
  Serious: Yes (Disabling)
  Sender: FDA-Public Use
  Company Number: US-GLAXOSMITHKLINE-A0547959A

PATIENT
  Age: 34 Year
  Sex: Female
  Weight: 81.8 kg

DRUGS (2)
  1. ADVAIR DISKUS 100/50 [Suspect]
     Indication: ASTHMA
     Dosage: 1PUFF SEE DOSAGE TEXT
     Route: 055
  2. WELLBUTRIN [Concomitant]

REACTIONS (1)
  - DYSPHONIA [None]
